FAERS Safety Report 5707678-0 (Version None)
Quarter: 2008Q2

REPORT INFORMATION
  Report Type: 
  Country: None (occurrence: None)
  Receive Date: 20080416
  Receipt Date: 20080404
  Transmission Date: 20081010
  Serious: Yes (Other)
  Sender: FDA-Public Use
  Company Number: US-PFIZER INC-2008031416

PATIENT
  Sex: Female
  Weight: 59 kg

DRUGS (8)
  1. CHANTIX [Suspect]
  2. WELLBUTRIN [Concomitant]
  3. TRAZODONE HCL [Concomitant]
  4. SEROQUEL [Concomitant]
  5. FERGON [Concomitant]
  6. HYDROCHLOROTHIAZIDE [Concomitant]
  7. PREVACID [Concomitant]
  8. HYDROXYZINE [Concomitant]

REACTIONS (1)
  - WEIGHT DECREASED [None]
